FAERS Safety Report 19778566 (Version 1)
Quarter: 2021Q3

REPORT INFORMATION
  Report Type: Spontaneous
  Country: US (occurrence: US)
  Receive Date: 20210902
  Receipt Date: 20210902
  Transmission Date: 20211014
  Serious: Yes (Life-Threatening, Hospitalization, Other)
  Sender: FDA-Public Use
  Company Number: None

PATIENT
  Age: 82 Year
  Sex: Male
  Weight: 100 kg

DRUGS (4)
  1. ERTAPENEM. [Suspect]
     Active Substance: ERTAPENEM SODIUM
     Indication: NASAL DISORDER
     Route: 042
     Dates: start: 20210830, end: 20210901
  2. ERTAPENEM. [Suspect]
     Active Substance: ERTAPENEM SODIUM
     Indication: CELLULITIS
     Route: 042
     Dates: start: 20210830, end: 20210901
  3. ERTAPENEM. [Suspect]
     Active Substance: ERTAPENEM SODIUM
     Indication: OSTEOMYELITIS
     Route: 042
     Dates: start: 20210830, end: 20210901
  4. DAPTOMYCIN 500MG IV [Concomitant]
     Dates: start: 20210830, end: 20210901

REACTIONS (2)
  - Seizure [None]
  - Unresponsive to stimuli [None]

NARRATIVE: CASE EVENT DATE: 20210901
